FAERS Safety Report 4643390-7 (Version None)
Quarter: 2005Q2

REPORT INFORMATION
  Report Type: 
  Country: None (occurrence: None)
  Receive Date: 20050422
  Receipt Date: 20050408
  Transmission Date: 20051028
  Serious: Yes (Other)
  Sender: FDA-Public Use
  Company Number: 2004077855

PATIENT
  Age: 14 Year
  Sex: Female
  Weight: 94.3482 kg

DRUGS (11)
  1. NEURONTIN [Suspect]
     Indication: ANGER
     Dosage: ORAL
     Route: 048
  2. NEURONTIN [Suspect]
     Indication: BIPOLAR DISORDER
     Dosage: ORAL
     Route: 048
  3. LEVOTHYROXINE SODIUM [Concomitant]
  4. CLINDAMYCIN (CLINDAMYCIN) [Concomitant]
  5. QUETIAPINE FUMARATE [Concomitant]
  6. LITHIUM CARBONATE [Concomitant]
  7. MULTIVITAMINS (ASCORBIC ACID, ERGOCALCIFEROL, FOLIC ACID, NICOTINAMIDE [Concomitant]
  8. PAROXETINE HCL [Concomitant]
  9. CLOZAPINE [Concomitant]
  10. LORAZEPAM [Concomitant]
  11. DOCUSATE SODIUM (DOCUSATE SODIUM) [Concomitant]

REACTIONS (10)
  - AFFECTIVE DISORDER [None]
  - ALCOHOLISM [None]
  - ANGER [None]
  - DEPRESSION [None]
  - DRUG ABUSER [None]
  - HYPOTHYROIDISM [None]
  - LEARNING DISORDER [None]
  - PSYCHOTIC DISORDER [None]
  - SCHIZOAFFECTIVE DISORDER [None]
  - SUICIDE ATTEMPT [None]
